FAERS Safety Report 21087634 (Version 1)
Quarter: 2022Q3

REPORT INFORMATION
  Report Type: Spontaneous
  Country: US (occurrence: US)
  Receive Date: 20220715
  Receipt Date: 20220715
  Transmission Date: 20221027
  Serious: Yes (Hospitalization, Other)
  Sender: FDA-Public Use
  Company Number: US-Accord-269469

PATIENT
  Age: 70 Year
  Sex: Female

DRUGS (2)
  1. METHOTREXATE [Suspect]
     Active Substance: METHOTREXATE
     Indication: Rheumatoid arthritis
  2. SOTALOL [Concomitant]
     Active Substance: SOTALOL
     Indication: Atrial fibrillation

REACTIONS (5)
  - Acute respiratory distress syndrome [Recovering/Resolving]
  - Enterovirus infection [Recovering/Resolving]
  - Rhinovirus infection [Recovering/Resolving]
  - Pneumocystis jirovecii infection [Unknown]
  - Aureobasidium pullulans infection [Unknown]
